FAERS Safety Report 10215292 (Version 1)
Quarter: 2014Q2

REPORT INFORMATION
  Report Type: Spontaneous
  Country: US (occurrence: US)
  Receive Date: 20140603
  Receipt Date: 20140603
  Transmission Date: 20141212
  Serious: No
  Sender: FDA-Public Use
  Company Number: US-009507513-1406USA000722

PATIENT
  Age: 58 Year
  Sex: Male

DRUGS (5)
  1. JANUVIA [Suspect]
     Indication: DIABETES MELLITUS
     Dosage: 100 MG, QD
     Route: 048
  2. JANUVIA [Suspect]
     Indication: DIABETES MELLITUS
     Dosage: ONCE DAILY
     Route: 048
  3. ZOCOR [Concomitant]
  4. PRINIVIL [Concomitant]
  5. METFORMIN [Concomitant]

REACTIONS (2)
  - Tremor [Recovered/Resolved]
  - Drug administration error [Unknown]
